FAERS Safety Report 19521031 (Version 2)
Quarter: 2021Q3

REPORT INFORMATION
  Report Type: Report from Study
  Country: CA (occurrence: CA)
  Receive Date: 20210712
  Receipt Date: 20210810
  Transmission Date: 20211014
  Serious: Yes (Other)
  Sender: FDA-Public Use
  Company Number: CA-MYLANLABS-2021M1037855

PATIENT
  Sex: Female

DRUGS (1)
  1. EPINEPHRINE. [Suspect]
     Active Substance: EPINEPHRINE
     Indication: ANAPHYLACTIC REACTION
     Dosage: UNK
     Route: 065

REACTIONS (6)
  - Angina pectoris [Recovered/Resolved]
  - Crying [Recovered/Resolved]
  - Heart rate increased [Recovered/Resolved]
  - Therapeutic product effect increased [Unknown]
  - Pain [Recovered/Resolved]
  - Tremor [Recovered/Resolved]
